FAERS Safety Report 14292758 (Version 3)
Quarter: 2019Q3

REPORT INFORMATION
  Report Type: Spontaneous
  Country: DE (occurrence: DE)
  Receive Date: 20171215
  Receipt Date: 20190806
  Transmission Date: 20191004
  Serious: Yes (Life-Threatening, Hospitalization, Other)
  Sender: FDA-Public Use
  Company Number: DE-MYLANLABS-2017M1077805

PATIENT
  Age: 20 Year
  Sex: Female

DRUGS (14)
  1. ASPIRIN                            /00002701/ [Concomitant]
     Active Substance: ASPIRIN
     Indication: PYREXIA
     Dosage: UNK
     Route: 065
  2. PARACETAMOL [Suspect]
     Active Substance: ACETAMINOPHEN
     Indication: PYREXIA
     Dosage: 2 G, QD
     Route: 065
  3. CIPROFLOXACIN. [Suspect]
     Active Substance: CIPROFLOXACIN
     Indication: ANTIBIOTIC THERAPY
     Dosage: UNK
     Route: 065
  4. CEFAZOLIN [Suspect]
     Active Substance: CEFAZOLIN
     Indication: HEPATITIS
  5. AMOXICILLIN. [Suspect]
     Active Substance: AMOXICILLIN
     Indication: ANTIBIOTIC THERAPY
     Dosage: UNK
     Route: 065
  6. AMOXICILLIN. [Suspect]
     Active Substance: AMOXICILLIN
     Indication: HEPATITIS
  7. PREDNISONE. [Concomitant]
     Active Substance: PREDNISONE
     Indication: HYPERSENSITIVITY
  8. CLINDAMYCIN. [Suspect]
     Active Substance: CLINDAMYCIN
     Indication: HEPATITIS
  9. CLINDAMYCIN. [Suspect]
     Active Substance: CLINDAMYCIN
     Indication: ANTIBIOTIC THERAPY
     Dosage: UNK
     Route: 065
  10. CEFAZOLIN [Suspect]
     Active Substance: CEFAZOLIN
     Indication: ANTIBIOTIC THERAPY
     Dosage: UNK
     Route: 042
  11. CIPROFLOXACIN. [Suspect]
     Active Substance: CIPROFLOXACIN
     Indication: HEPATITIS
  12. LEVOCETIRIZIN [Concomitant]
     Active Substance: LEVOCETIRIZINE DIHYDROCHLORIDE
     Indication: HYPERSENSITIVITY
     Dosage: UNK
  13. LEVOCETIRIZIN [Concomitant]
     Active Substance: LEVOCETIRIZINE DIHYDROCHLORIDE
     Indication: ANTIALLERGIC THERAPY
  14. PREDNISONE. [Concomitant]
     Active Substance: PREDNISONE
     Indication: PRURITUS GENERALISED

REACTIONS (7)
  - Acute hepatic failure [Recovered/Resolved]
  - Rash [Recovered/Resolved]
  - Drug-induced liver injury [Recovered/Resolved]
  - Lymphadenopathy [Recovered/Resolved]
  - Condition aggravated [Unknown]
  - Hepatic encephalopathy [Recovered/Resolved]
  - Pruritus generalised [Unknown]
